FAERS Safety Report 14267766 (Version 1)
Quarter: 2017Q4

REPORT INFORMATION
  Report Type: Spontaneous
  Country: US (occurrence: US)
  Receive Date: 20171211
  Receipt Date: 20171211
  Transmission Date: 20180321
  Serious: No
  Sender: FDA-Public Use
  Company Number: US-ROCHE-2003731

PATIENT
  Sex: Female
  Weight: 61.29 kg

DRUGS (2)
  1. VALIUM [Suspect]
     Active Substance: DIAZEPAM
     Indication: HYPERTENSION
     Route: 065
  2. DIAZEPAM. [Suspect]
     Active Substance: DIAZEPAM
     Indication: HYPERTENSION
     Dosage: NO
     Route: 048

REACTIONS (5)
  - Thyroid disorder [Unknown]
  - Insomnia [Unknown]
  - Pain [Unknown]
  - Aggression [Unknown]
  - Myalgia [Recovering/Resolving]
